FAERS Safety Report 23029155 (Version 1)
Quarter: 2023Q4

REPORT INFORMATION
  Report Type: Report from Study
  Country: US (occurrence: None)
  Receive Date: 20231004
  Receipt Date: 20231004
  Transmission Date: 20240109
  Serious: Yes (Hospitalization)
  Sender: FDA-Public Use
  Company Number: US-Eisai Medical Research-EC-2023-149983

PATIENT
  Age: 65 Year
  Sex: Male

DRUGS (1)
  1. LENVIMA [Suspect]
     Active Substance: LENVATINIB
     Indication: Hepatic cancer
     Route: 048
     Dates: start: 20220831, end: 202307

REACTIONS (5)
  - Paralysis [Recovering/Resolving]
  - Asthenia [Recovering/Resolving]
  - Drug ineffective [Unknown]
  - Back pain [Unknown]
  - Malignant neoplasm progression [Unknown]

NARRATIVE: CASE EVENT DATE: 20230701
